FAERS Safety Report 6304214-5 (Version None)
Quarter: 2009Q3

REPORT INFORMATION
  Report Type: 
  Country: None (occurrence: None)
  Receive Date: 20090811
  Receipt Date: 20090804
  Transmission Date: 20100115
  Serious: Yes (Life-Threatening, Hospitalization)
  Sender: FDA-Public Use
  Company Number: DE-TEVA-205169ISR

PATIENT
  Age: 78 Year
  Sex: Male
  Weight: 90 kg

DRUGS (3)
  1. TORSEMIDE [Suspect]
     Indication: HYPERTENSION
     Route: 048
     Dates: end: 20090415
  2. PHENPROCOUMON [Suspect]
     Indication: ATRIAL FIBRILLATION
     Route: 048
     Dates: end: 20090415
  3. DIOVAN HCT [Suspect]
     Indication: HYPERTENSION
     Dosage: 40MG VALSARTAN + 6.25MG HCT
     Route: 048
     Dates: end: 20090415

REACTIONS (1)
  - PANCREATITIS ACUTE [None]
